FAERS Safety Report 9422821 (Version 1)
Quarter: 2013Q3

REPORT INFORMATION
  Report Type: Report from Study
  Country: DE (occurrence: DE)
  Receive Date: 20130726
  Receipt Date: 20130726
  Transmission Date: 20140515
  Serious: Yes (Hospitalization)
  Sender: FDA-Public Use
  Company Number: PHHY2013DE079096

PATIENT
  Age: 67 Year
  Sex: Female
  Weight: 98 kg

DRUGS (14)
  1. TEGRETAL [Suspect]
     Dosage: UNK UKN, UNK
     Route: 048
     Dates: start: 20050624, end: 20080611
  2. PEGVISOMANT [Suspect]
     Indication: ACROMEGALY
     Dosage: 20 MG/DAY
     Dates: start: 20041227
  3. DELIX PLUS [Suspect]
     Indication: HYPERTENSION
     Dosage: UNK UKN, UNK
     Dates: start: 20040615, end: 20070903
  4. CARBAMAZEPINE [Concomitant]
     Dosage: UNK UKN, UNK
     Dates: start: 20050801, end: 20050828
  5. CARBAMAZEPINE [Concomitant]
     Dosage: UNK UKN, UNK
     Dates: start: 20091007
  6. GLUCOPHAGE [Concomitant]
     Indication: TYPE 2 DIABETES MELLITUS
     Dosage: UNK UKN, UNK
     Route: 048
     Dates: start: 20030615, end: 20070828
  7. OSPUR D3 [Concomitant]
     Dosage: UNK UKN, UNK
     Route: 048
     Dates: start: 20030513, end: 20080929
  8. SIMVABETA [Concomitant]
     Indication: LIPIDS ABNORMAL
     Dosage: UNK UKN, UNK
     Route: 048
     Dates: start: 20050103, end: 20070903
  9. BELOC//METOPROLOL SUCCINATE [Concomitant]
     Indication: HYPERTENSION
     Dosage: UNK UKN, UNK
     Route: 048
     Dates: start: 20031015
  10. SORTIS [Concomitant]
     Indication: LIPIDS ABNORMAL
     Dosage: UNK UKN, UNK
     Route: 048
     Dates: start: 20030415, end: 20070828
  11. L-THYROXIN [Concomitant]
     Indication: PRIMARY HYPOTHYROIDISM
     Dosage: UNK UKN, UNK
     Route: 048
     Dates: start: 20050710
  12. ASPIRINE [Concomitant]
     Indication: CARDIOVASCULAR DISORDER
     Dosage: UNK UKN, UNK
     Route: 048
     Dates: start: 20040315
  13. CABASERIL [Concomitant]
     Dosage: UNK UKN, UNK
     Route: 048
     Dates: start: 20030715, end: 20050115
  14. OCTREOTIDE [Concomitant]
     Dosage: UNK UKN, UNK
     Dates: start: 20020115, end: 20041228

REACTIONS (2)
  - Hypervolaemia [Recovered/Resolved]
  - Hyponatraemia [Recovered/Resolved]
